FAERS Safety Report 4782758-5 (Version None)
Quarter: 2005Q3

REPORT INFORMATION
  Report Type: 
  Country: None (occurrence: None)
  Receive Date: 20050927
  Receipt Date: 20050916
  Transmission Date: 20060218
  Serious: Yes (Death)
  Sender: FDA-Public Use
  Company Number: B0394486A

PATIENT

DRUGS (9)
  1. ALKERAN [Suspect]
     Indication: NON-HODGKIN'S LYMPHOMA
  2. THIOTEPA [Suspect]
  3. ETOPOSIDE [Suspect]
     Indication: NON-HODGKIN'S LYMPHOMA
  4. MITOXANTRONE [Suspect]
     Indication: NON-HODGKIN'S LYMPHOMA
  5. CARBOPLATIN [Suspect]
     Indication: NON-HODGKIN'S LYMPHOMA
  6. CYTARABINE [Suspect]
     Indication: NON-HODGKIN'S LYMPHOMA
  7. CARMUSTINE [Suspect]
     Indication: NON-HODGKIN'S LYMPHOMA
  8. GRANULOCYTE COL. STIM. FACT [Concomitant]
  9. CANCER CHEMOTHERAPY [Concomitant]

REACTIONS (4)
  - AGRANULOCYTOSIS [None]
  - CEREBRAL HAEMORRHAGE [None]
  - CYTOMEGALOVIRUS INFECTION [None]
  - TREATMENT NONCOMPLIANCE [None]
